FAERS Safety Report 9684645 (Version 2)
Quarter: 2013Q4

REPORT INFORMATION
  Report Type: Spontaneous
  Country: US (occurrence: None)
  Receive Date: 20131108
  Receipt Date: 20131121
  Transmission Date: 20140711
  Serious: Yes (Life-Threatening)
  Sender: FDA-Public Use
  Company Number: AUR-APL-2013-09282

PATIENT
  Age: 85 Year
  Sex: Female

DRUGS (5)
  1. TRIMETHOPRIM+SULFAMETHOXAZOLE [Suspect]
     Indication: URINARY TRACT INFECTION
  2. SOTALOL [Suspect]
     Indication: PRODUCT USED FOR UNKNOWN INDICATION
  3. SPIRONOLACTONE (SPIRONOLACTONE) [Suspect]
     Indication: PRODUCT USED FOR UNKNOWN INDICATION
  4. VALSARTAN [Suspect]
     Indication: PRODUCT USED FOR UNKNOWN INDICATION
  5. WARFARIN (WARFARIN) [Concomitant]

REACTIONS (11)
  - Hyperkalaemia [None]
  - Hypotension [None]
  - Bradycardia [None]
  - Haemodialysis [None]
  - Drug interaction [None]
  - Diarrhoea [None]
  - Bundle branch block left [None]
  - Blood urea increased [None]
  - Blood creatinine increased [None]
  - Metabolic acidosis [None]
  - Electrocardiogram QRS complex prolonged [None]
